FAERS Safety Report 8054585-7 (Version None)
Quarter: 2012Q1

REPORT INFORMATION
  Report Type: 
  Country: None (occurrence: None)
  Receive Date: 20120119
  Receipt Date: 20120112
  Transmission Date: 20120608
  Serious: Yes (Hospitalization)
  Sender: FDA-Public Use
  Company Number: US-BIOGENIDEC-2011BI048509

PATIENT
  Age: 67 Year
  Sex: Male

DRUGS (1)
  1. AVONEX [Suspect]
     Indication: MULTIPLE SCLEROSIS
     Route: 030
     Dates: start: 19991101

REACTIONS (6)
  - ASTHENIA [None]
  - GAIT DISTURBANCE [None]
  - DEPRESSION [None]
  - INITIAL INSOMNIA [None]
  - FALL [None]
  - STAPHYLOCOCCAL INFECTION [None]
